FAERS Safety Report 24404377 (Version 1)
Quarter: 2024Q4

REPORT INFORMATION
  Report Type: Spontaneous
  Country: FR (occurrence: FR)
  Receive Date: 20241007
  Receipt Date: 20241007
  Transmission Date: 20250115
  Serious: Yes (Other)
  Sender: MYLAN
  Company Number: FR-MYLANLABS-2024M1088535

PATIENT
  Age: 69 Year
  Sex: Female

DRUGS (3)
  1. LYRICA [Suspect]
     Active Substance: PREGABALIN
     Indication: Neuralgia
     Dosage: 3 DOSAGE FORM, QD
     Route: 065
  2. LYRICA [Suspect]
     Active Substance: PREGABALIN
     Dosage: UNK
     Route: 065
  3. TRAMADOL [Suspect]
     Active Substance: TRAMADOL
     Indication: Product used for unknown indication
     Dosage: 300 MILLIGRAM, QD
     Route: 065

REACTIONS (10)
  - Hallucination [Unknown]
  - Hepatitis C [Unknown]
  - Constipation [Unknown]
  - Fatigue [Unknown]
  - Cerebral disorder [Unknown]
  - Liver disorder [Unknown]
  - Visual impairment [Unknown]
  - Red blood cell abnormality [Unknown]
  - White blood cell disorder [Unknown]
  - Intentional product misuse [Unknown]
